FAERS Safety Report 4514690-6 (Version None)
Quarter: 2004Q4

REPORT INFORMATION
  Report Type: 
  Country: None (occurrence: None)
  Receive Date: 20041126
  Receipt Date: 20041115
  Transmission Date: 20050328
  Serious: Yes (Hospitalization)
  Sender: FDA-Public Use
  Company Number: 1054191SR

PATIENT
  Age: 59 Year
  Sex: Male

DRUGS (8)
  1. FLUOROURACIL [Suspect]
     Indication: RENAL CELL CARCINOMA STAGE UNSPECIFIED
     Dosage: 750 MG/M2  {A MONTH
     Route: 042
  2. INTERFERON ALFA [Suspect]
     Indication: RENAL CELL CARCINOMA STAGE UNSPECIFIED
     Route: 058
     Dates: start: 20040903
  3. PROLEUKIN [Suspect]
     Indication: RENAL CELL CARCINOMA STAGE UNSPECIFIED
     Route: 058
     Dates: start: 20040903, end: 20041001
  4. GLICLAZIDE [Concomitant]
  5. PARACETAMOL [Concomitant]
  6. PANTOPRAZOLE SODIUM [Concomitant]
  7. DEXAMETHASONE [Concomitant]
  8. METOCLOPRAMIDE [Concomitant]

REACTIONS (4)
  - DEHYDRATION [None]
  - NAUSEA [None]
  - NEUTROPENIA [None]
  - VOMITING [None]
